FAERS Safety Report 11553238 (Version 1)
Quarter: 2015Q3

REPORT INFORMATION
  Report Type: Spontaneous
  Country: IT (occurrence: IT)
  Receive Date: 20150925
  Receipt Date: 20150925
  Transmission Date: 20151125
  Serious: Yes (Hospitalization)
  Sender: FDA-Public Use
  Company Number: IT-TEVA-595081ACC

PATIENT
  Age: 34 Year
  Sex: Male

DRUGS (2)
  1. METOTRESSATO TEVA - 25 MG/ML SOLUZIONE INIETTABILE [Suspect]
     Active Substance: METHOTREXATE SODIUM
     Indication: NON-HODGKIN^S LYMPHOMA
     Dosage: 1200 MG CYCLICAL
     Route: 042
     Dates: start: 20150702, end: 20150829
  2. CITARABINA HOSPIRA - 2 G/20 ML SOLUZIONE INIETTABILE [Suspect]
     Active Substance: CYTARABINE
     Indication: NON-HODGKIN^S LYMPHOMA
     Dosage: 4500 MG CYCLICAL
     Route: 042
     Dates: start: 20150702, end: 20150831

REACTIONS (4)
  - Escherichia sepsis [Recovered/Resolved]
  - Febrile neutropenia [Recovered/Resolved]
  - Skin lesion [Recovered/Resolved]
  - Stomatitis [Recovered/Resolved]

NARRATIVE: CASE EVENT DATE: 20150908
